FAERS Safety Report 21737817 (Version 1)
Quarter: 2022Q4

REPORT INFORMATION
  Report Type: Spontaneous
  Country: HR (occurrence: HR)
  Receive Date: 20221216
  Receipt Date: 20221216
  Transmission Date: 20230113
  Serious: Yes (Other)
  Sender: FDA-Public Use
  Company Number: HR-002147023-NVSC2022HR260979

PATIENT

DRUGS (12)
  1. GOSERELIN [Suspect]
     Active Substance: GOSERELIN
     Indication: Metastases to bone
     Dosage: 3.6 MILLIGRAM, MONTHLY
     Route: 058
     Dates: start: 202201
  2. GOSERELIN [Suspect]
     Active Substance: GOSERELIN
     Indication: Breast cancer female
  3. ZOLADEX [Suspect]
     Active Substance: GOSERELIN ACETATE
     Indication: Metastases to bone
     Dosage: UNK
     Route: 065
  4. ZOLADEX [Suspect]
     Active Substance: GOSERELIN ACETATE
     Indication: Breast cancer female
  5. KISQALI [Suspect]
     Active Substance: RIBOCICLIB
     Indication: Breast cancer female
     Dosage: 600 MILLIGRAM, QD
     Route: 048
     Dates: start: 202201
  6. KISQALI [Suspect]
     Active Substance: RIBOCICLIB
     Indication: Metastases to bone
  7. LETROZOLE [Suspect]
     Active Substance: LETROZOLE
     Indication: Breast cancer female
     Dosage: 2.5 MILLIGRAM, QD
     Route: 065
     Dates: start: 202201
  8. LETROZOLE [Suspect]
     Active Substance: LETROZOLE
     Indication: Metastases to bone
  9. VITAMIN D NOS [Suspect]
     Active Substance: VITAMIN D NOS
     Indication: Breast cancer female
     Dosage: UNK
     Route: 065
     Dates: start: 202201
  10. VITAMIN D NOS [Suspect]
     Active Substance: VITAMIN D NOS
     Indication: Metastases to bone
  11. ZOLEDRONIC ACID [Suspect]
     Active Substance: ZOLEDRONIC ACID
     Indication: Metastases to bone
     Dosage: 4 MG (1 X MONTH (FIRST 3 MONTHS), THEN EVERY 3 MONTHS)
     Route: 042
     Dates: start: 202201
  12. ZOLEDRONIC ACID [Suspect]
     Active Substance: ZOLEDRONIC ACID
     Indication: Breast cancer female

REACTIONS (1)
  - Neutropenia [Unknown]

NARRATIVE: CASE EVENT DATE: 20220101
